FAERS Safety Report 16026538 (Version 1)
Quarter: 2019Q1

REPORT INFORMATION
  Report Type: Spontaneous
  Country: US (occurrence: US)
  Receive Date: 20190302
  Receipt Date: 20190302
  Transmission Date: 20190418
  Serious: No
  Sender: FDA-Public Use
  Company Number: US-009507513-1902USA011291

PATIENT
  Sex: Female
  Weight: 80.74 kg

DRUGS (1)
  1. MAXALT [Suspect]
     Active Substance: RIZATRIPTAN BENZOATE
     Indication: MIGRAINE

REACTIONS (5)
  - Therapeutic response decreased [Unknown]
  - Migraine [Unknown]
  - Somnolence [Unknown]
  - Drug ineffective [Unknown]
  - Drug tolerance increased [Unknown]
